FAERS Safety Report 8294043-8 (Version None)
Quarter: 2012Q2

REPORT INFORMATION
  Report Type: 
  Country: None (occurrence: None)
  Receive Date: 20120418
  Receipt Date: 20120412
  Transmission Date: 20120825
  Serious: Yes (Other)
  Sender: FDA-Public Use
  Company Number: DE-PFIZER INC-2012091986

PATIENT
  Age: 47 Year
  Sex: Female
  Weight: 65.5 kg

DRUGS (23)
  1. SOMATROPIN [Suspect]
     Dosage: 0.3 MG, 1X/DAY
     Dates: start: 20051015
  2. CALCIVIT D [Concomitant]
     Dosage: 1500 MG DAILY
     Dates: start: 20050509
  3. PROTHYRID [Concomitant]
     Indication: BLOOD THYROID STIMULATING HORMONE DECREASED
     Dosage: 50 UG DAILY
     Dates: start: 19980701
  4. SOMATROPIN [Suspect]
     Dosage: UNK
     Dates: start: 20070815
  5. HYDROXYCHLOROQUINE SULFATE [Concomitant]
     Dosage: 200 MG DAILY
     Dates: start: 20050509
  6. SOMATROPIN [Suspect]
     Dosage: 0.6 MG, 1X/DAY
     Dates: start: 20050510
  7. SOMATROPIN [Suspect]
     Dosage: 0.4 MG, 1X/DAY
     Dates: start: 20070323
  8. SOMATROPIN [Suspect]
     Dosage: 0.2 MG, 1X/DAY
     Dates: start: 20081216
  9. SOMATROPIN [Suspect]
     Dosage: 0.6 MG, 1X/DAY
     Dates: start: 20070515
  10. HYDROXYCHLOROQUINE SULFATE [Concomitant]
     Dosage: UNK
     Dates: start: 20090601
  11. SOMATROPIN [Suspect]
     Indication: GROWTH HORMONE DEFICIENCY
     Dosage: 1 MG, 1X/DAY
     Dates: start: 20040527
  12. SOMATROPIN [Suspect]
     Dosage: 0.5 MG, 1X/DAY
     Dates: start: 20091001
  13. SOMATROPIN [Suspect]
     Dosage: 0.5 MG, 1X/DAY
     Dates: start: 20100107
  14. AMLODIPINE BESYLATE [Concomitant]
     Dosage: 5 MG DAILY
     Dates: start: 20081101, end: 20100501
  15. METO-TABLINEN [Concomitant]
     Dosage: 12.5 DF DAILY
     Dates: start: 20081101
  16. PRASTERONE [Concomitant]
     Indication: BLOOD CORTICOTROPHIN DECREASED
     Dosage: 5 MG DAILY
     Dates: start: 20050803
  17. HYDROCORTISONE [Concomitant]
     Indication: BLOOD CORTICOTROPHIN DECREASED
     Dosage: 40 MG DAILY
     Dates: start: 19980701
  18. SOMATROPIN [Suspect]
     Dosage: UNK
     Dates: start: 20051001
  19. AREDIA [Concomitant]
     Dosage: 30 DF, UNK
     Dates: start: 20081101, end: 20100515
  20. SOMATROPIN [Suspect]
     Dosage: 1 MG, 1X/DAY
     Dates: start: 20050810
  21. SOMATROPIN [Suspect]
     Dosage: 0.3 MG, 1X/DAY
     Dates: start: 20090301
  22. SOMATROPIN [Suspect]
     Dosage: 0.3 MG, 1X/DAY
     Dates: start: 20091217
  23. HYDROXYCHLOROQUINE SULFATE [Concomitant]
     Dosage: 150 MG DAILY
     Dates: start: 20090602

REACTIONS (1)
  - FRACTURE [None]
